FAERS Safety Report 20233154 (Version 3)
Quarter: 2022Q1

REPORT INFORMATION
  Report Type: Spontaneous
  Country: CO (occurrence: CO)
  Receive Date: 20211227
  Receipt Date: 20220205
  Transmission Date: 20220423
  Serious: Yes (Other)
  Sender: FDA-Public Use
  Company Number: CO-AMGEN-COLSP2021203751

PATIENT
  Age: 58 Year
  Sex: Female
  Weight: 39 kg

DRUGS (11)
  1. MVASI [Suspect]
     Active Substance: BEVACIZUMAB-AWWB
     Indication: Ovarian epithelial cancer
     Dosage: 410 MILLIGRAM, QD
     Route: 042
     Dates: start: 20201020
  2. MVASI [Suspect]
     Active Substance: BEVACIZUMAB-AWWB
     Dosage: 433 MILLIGRAM
     Route: 042
     Dates: start: 20210401, end: 20220127
  3. CARBOPLATIN [Concomitant]
     Active Substance: CARBOPLATIN
     Indication: Ovarian epithelial cancer
     Dosage: 405.05 MILLIGRAM, QD
     Route: 042
     Dates: start: 20201020
  4. CARBOPLATIN [Concomitant]
     Active Substance: CARBOPLATIN
     Dosage: UNK
     Route: 042
     Dates: start: 20210401
  5. DOXORUBICIN HYDROCHLORIDE [Concomitant]
     Active Substance: DOXORUBICIN HYDROCHLORIDE
     Indication: Ovarian epithelial cancer
     Dosage: 39.6 MILLIGRAM, QD
     Route: 042
     Dates: start: 20201020
  6. DOXORUBICIN HYDROCHLORIDE [Concomitant]
     Active Substance: DOXORUBICIN HYDROCHLORIDE
     Dosage: 30 MILLIGRAM
     Route: 042
     Dates: start: 20210401
  7. DEXAMETHASONE PHOSPHATE [Concomitant]
     Active Substance: DEXAMETHASONE PHOSPHATE
     Indication: Ovarian epithelial cancer
     Dosage: 8 MILLIGRAM, QD
     Route: 042
     Dates: start: 20201020
  8. FOSAPREPITANT [Concomitant]
     Active Substance: FOSAPREPITANT
     Indication: Ovarian epithelial cancer
     Dosage: 150 MILLIGRAM, QD
     Route: 042
     Dates: start: 20201020
  9. PACLITAXEL [Concomitant]
     Active Substance: PACLITAXEL
     Indication: Ovarian epithelial cancer
     Dosage: 175 MILLIGRAM/SQ. METER
     Route: 042
     Dates: start: 20201020
  10. PEMBROLIZUMAB [Concomitant]
     Active Substance: PEMBROLIZUMAB
     Indication: Ovarian epithelial cancer
     Dosage: 200 MILLIGRAM
     Route: 042
     Dates: start: 20201020
  11. PLATINUM [Concomitant]
     Active Substance: PLATINUM
     Dosage: UNK

REACTIONS (10)
  - Ascites [Not Recovered/Not Resolved]
  - Ovarian epithelial cancer [Not Recovered/Not Resolved]
  - Discomfort [Not Recovered/Not Resolved]
  - Malaise [Not Recovered/Not Resolved]
  - General physical health deterioration [Not Recovered/Not Resolved]
  - Off label use [Unknown]
  - Therapy partial responder [Unknown]
  - Pain [Not Recovered/Not Resolved]
  - Headache [Not Recovered/Not Resolved]
  - Constipation [Not Recovered/Not Resolved]

NARRATIVE: CASE EVENT DATE: 20201020
